FAERS Safety Report 4561505-6 (Version None)
Quarter: 2005Q1

REPORT INFORMATION
  Report Type: 
  Country: None (occurrence: None)
  Receive Date: 20050121
  Receipt Date: 20050113
  Transmission Date: 20050727
  Serious: Yes (Death)
  Sender: FDA-Public Use
  Company Number: 210515

PATIENT
  Age: 15 Year
  Sex: Male
  Weight: 68.6 kg

DRUGS (6)
  1. OMALIZUMAB (OMALIZUMAB) PWDR + SOLVENT, INJECTION SOLN, 150MG [Suspect]
     Indication: ASTHMA
     Dosage: 375 MG, Q2W, SUBCUTANEOUS
     Route: 058
     Dates: start: 20040616, end: 20041102
  2. ADVAIR (FLUTICASONE PROPIONATE, SALMETEROL XINAFOATE) [Concomitant]
  3. SINGULAIR [Concomitant]
  4. ALBUTEROL (ALBUTEROL, ALBUTEROL SULFATE) [Concomitant]
  5. NASACORT [Concomitant]
  6. ANTI-FUNGAL CREAM (ANTI FUNGAL AGENT NOS [Concomitant]

REACTIONS (3)
  - CARDIAC ARREST [None]
  - CIRCULATORY COLLAPSE [None]
  - SUDDEN DEATH [None]
